FAERS Safety Report 7510808-1 (Version None)
Quarter: 2011Q2

REPORT INFORMATION
  Report Type: 
  Country: None (occurrence: None)
  Receive Date: 20110531
  Receipt Date: 20110523
  Transmission Date: 20111010
  Serious: Yes (Hospitalization)
  Sender: FDA-Public Use
  Company Number: US-BRISTOL-MYERS SQUIBB COMPANY-15768716

PATIENT
  Age: 75 Year
  Sex: Female

DRUGS (4)
  1. METFORMIN HCL [Suspect]
  2. SULFAMETHOXAZOLE AND TRIMETHOPRIM [Suspect]
  3. GLIPIZIDE [Suspect]
  4. NATEGLINIDE [Suspect]

REACTIONS (3)
  - HYPOGLYCAEMIA [None]
  - CONVULSION [None]
  - DELIRIUM [None]
